FAERS Safety Report 20204198 (Version 3)
Quarter: 2023Q2

REPORT INFORMATION
  Report Type: Spontaneous
  Country: US (occurrence: US)
  Receive Date: 20211220
  Receipt Date: 20230622
  Transmission Date: 20230722
  Serious: Yes (Other)
  Sender: FDA-Public Use
  Company Number: US-Ipsen Biopharmaceuticals, Inc.-2021-31775

PATIENT
  Sex: Male

DRUGS (1)
  1. SOMATULINE DEPOT [Suspect]
     Active Substance: LANREOTIDE ACETATE
     Indication: Acromegaly
     Dosage: DOSE: 120 MG/0.5 MG
     Route: 058
     Dates: start: 20180305

REACTIONS (3)
  - Brain neoplasm [Unknown]
  - Injury [Unknown]
  - Dry mouth [Unknown]
